FAERS Safety Report 8344854-5 (Version None)
Quarter: 2012Q2

REPORT INFORMATION
  Report Type: 
  Country: None (occurrence: None)
  Receive Date: 20120508
  Receipt Date: 20120430
  Transmission Date: 20120825
  Serious: Yes (Other)
  Sender: FDA-Public Use
  Company Number: BR-GLAXOSMITHKLINE-A0976453A

PATIENT
  Sex: Male
  Weight: 79 kg

DRUGS (12)
  1. AMIODARONE HCL [Suspect]
     Indication: PRODUCT USED FOR UNKNOWN INDICATION
     Dosage: 1TAB TWELVE TIMES PER DAY
     Route: 065
     Dates: start: 19940101
  2. TAMSULOSIN HYDROCHLORIDE [Suspect]
     Indication: PRODUCT USED FOR UNKNOWN INDICATION
     Dosage: 1TAB TWICE PER DAY
     Route: 065
     Dates: start: 20100101
  3. GINKGO BILOBA [Suspect]
     Indication: PRODUCT USED FOR UNKNOWN INDICATION
     Route: 065
     Dates: start: 20060101
  4. FLUTICASONE PROPIONATE [Suspect]
     Indication: ASTHMA
     Route: 055
     Dates: start: 20040101
  5. LEXOTAN [Suspect]
     Indication: PRODUCT USED FOR UNKNOWN INDICATION
     Dosage: 1TAB AT NIGHT
     Route: 065
     Dates: start: 20000101
  6. MESALAMINE [Concomitant]
     Indication: PRODUCT USED FOR UNKNOWN INDICATION
     Dosage: 1SUP PER DAY
     Route: 065
     Dates: start: 20120301
  7. MELILOT [Concomitant]
     Indication: PRODUCT USED FOR UNKNOWN INDICATION
     Dosage: 1TAB TWICE PER DAY
     Route: 065
     Dates: start: 20120301
  8. NASONEX [Suspect]
     Indication: PRODUCT USED FOR UNKNOWN INDICATION
     Dosage: 1SPR TWICE PER DAY
     Route: 045
     Dates: start: 20000101
  9. UNSPECIFIED SUPPOSITORY [Concomitant]
     Indication: PRODUCT USED FOR UNKNOWN INDICATION
     Dosage: 1SUP PER DAY
     Route: 065
     Dates: start: 20120301
  10. METFORMIN HYDROCHLORIDE [Suspect]
     Indication: PRODUCT USED FOR UNKNOWN INDICATION
     Dosage: 1TAB TWICE PER DAY
     Route: 065
     Dates: start: 20060101
  11. ZOLOFT [Suspect]
     Indication: PRODUCT USED FOR UNKNOWN INDICATION
     Dosage: 1TAB IN THE MORNING
     Route: 065
     Dates: start: 20100101
  12. PANTOPRAZOLE [Suspect]
     Indication: PRODUCT USED FOR UNKNOWN INDICATION
     Dosage: 1TAB IN THE MORNING
     Route: 065
     Dates: start: 20080101

REACTIONS (4)
  - LARYNGEAL POLYP [None]
  - PROSTATE CANCER [None]
  - COLON CANCER [None]
  - RECTAL HAEMORRHAGE [None]
